FAERS Safety Report 12915677 (Version 1)
Quarter: 2016Q4

REPORT INFORMATION
  Report Type: Report from Study
  Country: JP (occurrence: JP)
  Receive Date: 20161106
  Receipt Date: 20161106
  Transmission Date: 20170207
  Serious: Yes (Other)
  Sender: FDA-Public Use
  Company Number: JP-MYLANLABS-2016M1047712

PATIENT

DRUGS (2)
  1. CISPLATIN. [Suspect]
     Active Substance: CISPLATIN
     Indication: METASTATIC SQUAMOUS CELL CARCINOMA
     Dosage: PER WEEK FOR 4 WEEKS; FOUR TIMES TARGETED TO THE PRIMARY TUMOUR WITH A TOTAL DOSE OF 447 MG/M2
     Route: 013
  2. CISPLATIN. [Suspect]
     Active Substance: CISPLATIN
     Dosage: PER WEEK FOR 4 WEEKS; THREE TIMES TARGETED TO THE RPLN METASTASIS WITH A TOTAL DOSE OF 16.8 MG/M2
     Route: 013

REACTIONS (1)
  - Osteonecrosis of jaw [Recovered/Resolved]
